FAERS Safety Report 9548543 (Version 1)
Quarter: 2013Q3

REPORT INFORMATION
  Report Type: Spontaneous
  Country: US (occurrence: US)
  Receive Date: 20130924
  Receipt Date: 20130924
  Transmission Date: 20140515
  Serious: No
  Sender: FDA-Public Use
  Company Number: US-PFIZER INC-2013272253

PATIENT
  Sex: Female

DRUGS (1)
  1. XALKORI [Suspect]
     Dosage: UNK

REACTIONS (3)
  - Blood cholesterol decreased [Unknown]
  - Blood glucose decreased [Unknown]
  - Therapeutic response unexpected [Unknown]
